FAERS Safety Report 11581535 (Version 1)
Quarter: 2015Q4

REPORT INFORMATION
  Report Type: Spontaneous
  Country: US (occurrence: US)
  Receive Date: 20151001
  Receipt Date: 20151001
  Transmission Date: 20160304
  Serious: No
  Sender: FDA-Public Use
  Company Number: US-ROCHE-695212

PATIENT
  Age: 40 Year
  Sex: Female
  Weight: 63.5 kg

DRUGS (2)
  1. RIBAVIRIN. [Suspect]
     Active Substance: RIBAVIRIN
     Indication: HEPATITIS C
     Route: 048
  2. PEGASYS [Suspect]
     Active Substance: PEGINTERFERON ALFA-2A
     Indication: HEPATITIS C
     Route: 058

REACTIONS (6)
  - Fatigue [Unknown]
  - Pain [Unknown]
  - Chills [Unknown]
  - Hot flush [Unknown]
  - Nausea [Unknown]
  - Panic reaction [Unknown]

NARRATIVE: CASE EVENT DATE: 20100319
